FAERS Safety Report 8168249-2 (Version None)
Quarter: 2012Q1

REPORT INFORMATION
  Report Type: 
  Country: None (occurrence: None)
  Receive Date: 20120227
  Receipt Date: 20120223
  Transmission Date: 20120608
  Serious: Yes (Life-Threatening, Hospitalization, Other)
  Sender: FDA-Public Use
  Company Number: PHHY2012ES015545

PATIENT
  Age: 68 Year
  Sex: Male

DRUGS (6)
  1. MYFORTIC [Suspect]
     Indication: RENAL TRANSPLANT
     Dosage: 720 MG, UNK
     Route: 048
     Dates: start: 20030301
  2. PREDNISONE [Concomitant]
  3. DOXAZOSIN MESYLATE [Concomitant]
  4. ATORVASTATIN [Concomitant]
  5. ALDACTONE [Interacting]
     Dosage: 25 MG, UNK
     Route: 048
     Dates: start: 20101118
  6. PROGRAF [Interacting]
     Indication: RENAL TRANSPLANT
     Dosage: 1 MG, UNK
     Route: 048
     Dates: start: 20100801, end: 20110105

REACTIONS (4)
  - HYPERKALAEMIA [None]
  - RENAL FAILURE ACUTE [None]
  - BLOOD PRESSURE SYSTOLIC INCREASED [None]
  - DRUG INTERACTION [None]
